FAERS Safety Report 10455234 (Version 2)
Quarter: 2014Q3

REPORT INFORMATION
  Report Type: Other
  Country: US (occurrence: US)
  Receive Date: 20140916
  Receipt Date: 20140922
  Transmission Date: 20150326
  Serious: No
  Sender: FDA-Public Use
  Company Number: US-LUPIN PHARMACEUTICALS INC.-E2B_00002327

PATIENT
  Sex: Male
  Weight: 79.45 kg

DRUGS (6)
  1. ZIPRASIDONE HYDROCHLORIDE CAPSULES 40 MG [Suspect]
     Active Substance: ZIPRASIDONE
     Indication: AGGRESSION
     Dates: start: 201406, end: 2014
  2. CLONIDINE. [Concomitant]
     Active Substance: CLONIDINE
     Indication: FRAGILE X SYNDROME
     Route: 065
  3. ZIPRASIDONE HYDROCHLORIDE CAPSULES 40 MG [Suspect]
     Active Substance: ZIPRASIDONE
     Indication: ANXIETY
     Dates: start: 2014, end: 2014
  4. ZIPRASIDONE HYDROCHLORIDE CAPSULES 60 MG [Suspect]
     Active Substance: ZIPRASIDONE HYDROCHLORIDE
     Indication: AGGRESSION
     Dates: start: 2014
  5. ZIPRASIDONE HYDROCHLORIDE CAPSULES 60 MG [Suspect]
     Active Substance: ZIPRASIDONE HYDROCHLORIDE
     Indication: ANXIETY
  6. BACLOFEN. [Concomitant]
     Active Substance: BACLOFEN
     Indication: PRODUCT USED FOR UNKNOWN INDICATION

REACTIONS (7)
  - Drooling [Not Recovered/Not Resolved]
  - Somnolence [Not Recovered/Not Resolved]
  - Disorientation [Recovered/Resolved]
  - Salivary hypersecretion [Not Recovered/Not Resolved]
  - Inappropriate schedule of drug administration [Unknown]
  - Off label use [Unknown]
  - Dysphagia [Not Recovered/Not Resolved]

NARRATIVE: CASE EVENT DATE: 2014
